FAERS Safety Report 8852682 (Version 2)
Quarter: 2012Q4

REPORT INFORMATION
  Report Type: 
  Country: US (occurrence: US)
  Receive Date: 20121022
  Receipt Date: 20121210
  Transmission Date: 20130627
  Serious: Yes (Hospitalization)
  Sender: FDA-Public Use
  Company Number: US-ASTRAZENECA-2012SE79009

PATIENT
  Age: 86 Year
  Sex: Female

DRUGS (2)
  1. NEXIUM [Suspect]
     Route: 048
  2. LANSOPRAZOLE [Suspect]
     Route: 065

REACTIONS (3)
  - Gastrooesophageal reflux disease [Unknown]
  - Onychoclasis [Unknown]
  - Nail disorder [Unknown]
